FAERS Safety Report 19271373 (Version 2)
Quarter: 2021Q3

REPORT INFORMATION
  Report Type: Spontaneous
  Country: NL (occurrence: NL)
  Receive Date: 20210518
  Receipt Date: 20210713
  Transmission Date: 20211014
  Serious: Yes (Other)
  Sender: FDA-Public Use
  Company Number: NL-PFIZER INC-2021514577

PATIENT
  Age: 39 Year
  Sex: Male

DRUGS (1)
  1. RITUXIMAB. [Suspect]
     Active Substance: RITUXIMAB
     Indication: RHEUMATOID ARTHRITIS
     Dosage: UNK
     Dates: start: 2006

REACTIONS (4)
  - Arthritis bacterial [Recovered/Resolved]
  - Urethritis ureaplasmal [Recovering/Resolving]
  - Hypogammaglobulinaemia [Unknown]
  - B-lymphocyte count decreased [Unknown]
